FAERS Safety Report 15851028 (Version 2)
Quarter: 2019Q1

REPORT INFORMATION
  Report Type: Report from Study
  Country: AU (occurrence: AU)
  Receive Date: 20190122
  Receipt Date: 20190206
  Transmission Date: 20190417
  Serious: Yes (Hospitalization, Other)
  Sender: FDA-Public Use
  Company Number: AU-BRISTOL-MYERS SQUIBB COMPANY-BMS-2019-004420

PATIENT
  Age: 71 Year
  Sex: Female
  Weight: 52.8 kg

DRUGS (2)
  1. NIVOLUMAB [Suspect]
     Active Substance: NIVOLUMAB
     Indication: ADRENOCORTICAL CARCINOMA
     Dosage: 158 MG, UNK
     Route: 042
     Dates: start: 20180829
  2. IPILIMUMAB [Suspect]
     Active Substance: IPILIMUMAB
     Indication: ADRENOCORTICAL CARCINOMA
     Dosage: 53 MG, UNK
     Route: 042
     Dates: start: 20180829

REACTIONS (2)
  - Neutropenia [Unknown]
  - Febrile neutropenia [Recovered/Resolved]

NARRATIVE: CASE EVENT DATE: 20190115
